FAERS Safety Report 4631264-7 (Version None)
Quarter: 2005Q2

REPORT INFORMATION
  Report Type: 
  Country: None (occurrence: None)
  Receive Date: 20050406
  Receipt Date: 20050325
  Transmission Date: 20051028
  Serious: Yes (Other)
  Sender: FDA-Public Use
  Company Number: 2005024897

PATIENT
  Age: 65 Year
  Sex: Male

DRUGS (7)
  1. BEXTRA [Suspect]
     Indication: BACK PAIN
     Dosage: 20 MG (10 MG, 2 IN 1 D)
     Dates: start: 20050105, end: 20050114
  2. METAXALONE [Suspect]
     Indication: BACK PAIN
     Dosage: 2400 MG (800 MG, 3 IN 1 D)
     Dates: start: 20050105
  3. METHYLPREDNISOLONE ACETATE [Suspect]
     Indication: PAIN
     Dosage: 1 CC
     Dates: start: 20050105
  4. ASPIRIN [Concomitant]
  5. MULTIVITAMINS (ASCORBIC ACID, ERGOCALCIFEROL, FOLIC ACID, NICOTINAMIDE [Concomitant]
  6. FEXOFENADINE HYDROCHLORIDE [Concomitant]
  7. PREDNISONE [Concomitant]

REACTIONS (2)
  - STEVENS-JOHNSON SYNDROME [None]
  - STOMATITIS [None]
